FAERS Safety Report 17247607 (Version 1)
Quarter: 2020Q1

REPORT INFORMATION
  Report Type: Spontaneous
  Country: US (occurrence: US)
  Receive Date: 20200107
  Receipt Date: 20200107
  Transmission Date: 20200409
  Serious: Yes (Life-Threatening)
  Sender: FDA-Public Use
  Company Number: None

PATIENT
  Age: 62 Year
  Sex: Female

DRUGS (16)
  1. CALCIUM [Concomitant]
     Active Substance: CALCIUM
  2. ZOLOFT [Concomitant]
     Active Substance: SERTRALINE HYDROCHLORIDE
  3. LORAZEPAM. [Concomitant]
     Active Substance: LORAZEPAM
  4. VITAMIN D [Concomitant]
     Active Substance: VITAMIN D NOS
  5. HYDROCODONE-ACETAMINOPHEN [Concomitant]
     Active Substance: ACETAMINOPHEN\HYDROCODONE
  6. ASPIRIN. [Concomitant]
     Active Substance: ASPIRIN
  7. UTIBRON NEOHALER [Concomitant]
     Active Substance: GLYCOPYRROLATE\INDACATEROL MALEATE
  8. SENEXON-S [Concomitant]
     Active Substance: DOCUSATE SODIUM\SENNOSIDES A AND B
  9. TYLENOL [Concomitant]
     Active Substance: ACETAMINOPHEN
  10. VELTASSA [Suspect]
     Active Substance: PATIROMER
     Indication: HYPERKALAEMIA
     Route: 048
     Dates: start: 20180213
  11. CALCITRIOL. [Concomitant]
     Active Substance: CALCITRIOL
  12. LORATADINE. [Concomitant]
     Active Substance: LORATADINE
  13. CINACALCET. [Concomitant]
     Active Substance: CINACALCET
  14. EZETIMIBE. [Concomitant]
     Active Substance: EZETIMIBE
  15. SODIUM BICARBONATE TABLETS [Concomitant]
  16. TERAZOSIN [Concomitant]
     Active Substance: TERAZOSIN HYDROCHLORIDE

REACTIONS (1)
  - Lung neoplasm malignant [None]

NARRATIVE: CASE EVENT DATE: 20190106
